FAERS Safety Report 4715600-9 (Version None)
Quarter: 2005Q3

REPORT INFORMATION
  Report Type: 
  Country: None (occurrence: None)
  Receive Date: 20050713
  Receipt Date: 20050311
  Transmission Date: 20060218
  Serious: Yes (Hospitalization)
  Sender: FDA-Public Use
  Company Number: 2005FR-00077

PATIENT
  Age: 80 Year
  Sex: Male

DRUGS (5)
  1. ASPIRIN [Suspect]
     Indication: MYOCARDIAL ISCHAEMIA
     Dosage: 75 MG, OD, ORAL
     Route: 048
     Dates: start: 20040801, end: 20050214
  2. ATENOLOL [Concomitant]
  3. CO-PROXAMOL [Concomitant]
  4. ATORVASTATIN CALCIUM [Concomitant]
  5. MOVELAT [Concomitant]

REACTIONS (7)
  - APHTHOUS STOMATITIS [None]
  - DUODENAL ULCER [None]
  - DYSPNOEA [None]
  - DYSPNOEA EXACERBATED [None]
  - EXERCISE TOLERANCE DECREASED [None]
  - GASTRIC ULCER [None]
  - GASTRITIS [None]
